FAERS Safety Report 16893139 (Version 1)
Quarter: 2019Q4

REPORT INFORMATION
  Report Type: Spontaneous
  Country: US (occurrence: US)
  Receive Date: 20191008
  Receipt Date: 20191008
  Transmission Date: 20200122
  Serious: Yes (Life-Threatening)
  Sender: FDA-Public Use
  Company Number: US-ROCHE-2422668

PATIENT
  Age: 60 Year
  Sex: Male
  Weight: 106.6 kg

DRUGS (4)
  1. NORMAL SALINE [Concomitant]
     Active Substance: SODIUM CHLORIDE
     Indication: CEREBROVASCULAR ACCIDENT
     Dosage: 1000 CC
     Route: 042
  2. ISOVUE 370 [Concomitant]
     Active Substance: IOPAMIDOL
     Route: 042
     Dates: start: 20190622, end: 20190622
  3. ACTIVASE [Suspect]
     Active Substance: ALTEPLASE
     Indication: CEREBROVASCULAR ACCIDENT
     Route: 042
     Dates: start: 20190622, end: 20190622
  4. ACTIVASE [Suspect]
     Active Substance: ALTEPLASE
     Route: 042
     Dates: start: 20190622, end: 20190622

REACTIONS (5)
  - Rash [Unknown]
  - Swollen tongue [Unknown]
  - Swelling face [Unknown]
  - Urticaria [Unknown]
  - Angioedema [Unknown]

NARRATIVE: CASE EVENT DATE: 20190622
